FAERS Safety Report 4498924-2 (Version None)
Quarter: 2004Q4

REPORT INFORMATION
  Report Type: 
  Country: None (occurrence: None)
  Receive Date: 20041108
  Receipt Date: 20041022
  Transmission Date: 20050328
  Serious: Yes (Hospitalization)
  Sender: FDA-Public Use
  Company Number: FR-2004-034419

PATIENT
  Age: 4 Year
  Sex: Female

DRUGS (2)
  1. SOTALOL(SOTALOL HYDROCHLORIDE) TABLET [Suspect]
     Indication: SUPRAVENTRICULAR TACHYCARDIA
     Dosage: 30 MG, 2X/DAY, ORAL
     Route: 048
     Dates: start: 20020701, end: 20040919
  2. FLIXOTIDE (FLUTICASONE PROPIONATE) [Concomitant]

REACTIONS (3)
  - CONVULSION [None]
  - HYPOGLYCAEMIA [None]
  - LOSS OF CONSCIOUSNESS [None]
